FAERS Safety Report 5137388-2 (Version None)
Quarter: 2006Q4

REPORT INFORMATION
  Report Type: 
  Country: None (occurrence: None)
  Receive Date: 20061030
  Receipt Date: 20051024
  Transmission Date: 20070319
  Serious: No
  Sender: FDA-Public Use
  Company Number: US-GLAXOSMITHKLINE-A0579409A

PATIENT
  Age: 40 Year
  Sex: Female

DRUGS (4)
  1. ADVAIR HFA [Suspect]
     Indication: ASTHMA
     Dosage: 1PUFF PER DAY
     Route: 055
     Dates: start: 20041201
  2. ORTHO TRI-CYCLEN [Concomitant]
  3. NEXIUM [Concomitant]
  4. RETIN-A [Concomitant]

REACTIONS (2)
  - MUSCLE SPASMS [None]
  - NECK PAIN [None]
